FAERS Safety Report 10926239 (Version 1)
Quarter: 2015Q1

REPORT INFORMATION
  Report Type: Spontaneous
  Country: GB (occurrence: GB)
  Receive Date: 20150318
  Receipt Date: 20150318
  Transmission Date: 20150721
  Serious: Yes (Hospitalization)
  Sender: FDA-Public Use
  Company Number: PHFR2015GB000744

PATIENT
  Age: 29 Year
  Sex: Male

DRUGS (2)
  1. CLOZARIL [Suspect]
     Active Substance: CLOZAPINE
     Indication: SCHIZOPHRENIA
     Dosage: UNK
     Route: 048
     Dates: start: 20121010
  2. CLOZARIL [Suspect]
     Active Substance: CLOZAPINE
     Dosage: 100 MG, BID
     Route: 048

REACTIONS (5)
  - Influenza like illness [Unknown]
  - Tachycardia [Unknown]
  - Lower respiratory tract infection [Recovered/Resolved]
  - Pneumonia [Unknown]
  - Chest pain [Unknown]

NARRATIVE: CASE EVENT DATE: 20150102
